FAERS Safety Report 4429413-9 (Version None)
Quarter: 2004Q3

REPORT INFORMATION
  Report Type: 
  Country: None (occurrence: None)
  Receive Date: 20040816
  Receipt Date: 20040803
  Transmission Date: 20050211
  Serious: Yes (Death, Life-Threatening, Other)
  Sender: FDA-Public Use
  Company Number: 2004052470

PATIENT
  Age: 48 Year
  Sex: Female

DRUGS (2)
  1. DOXYCYCLINE [Suspect]
     Indication: CHLAMYDIAL INFECTION
  2. PREDNISONE [Concomitant]

REACTIONS (20)
  - CARDIAC ARREST [None]
  - COMA [None]
  - CONFUSIONAL STATE [None]
  - CONVULSION [None]
  - DERMATOMYOSITIS [None]
  - DISEASE RECURRENCE [None]
  - HAEMATEMESIS [None]
  - HAEMOLYSIS [None]
  - HEADACHE [None]
  - IRRITABILITY [None]
  - MICROANGIOPATHIC HAEMOLYTIC ANAEMIA [None]
  - PALLOR [None]
  - PNEUMONIA CHLAMYDIAL [None]
  - POLYCHROMASIA [None]
  - RASH [None]
  - RENAL FAILURE [None]
  - RETINAL HAEMORRHAGE [None]
  - SOMNOLENCE [None]
  - THROMBOTIC THROMBOCYTOPENIC PURPURA [None]
  - VENTRICULAR ASYSTOLE [None]
